FAERS Safety Report 9089931 (Version 1)
Quarter: 2013Q1

REPORT INFORMATION
  Report Type: Spontaneous
  Country: US (occurrence: US)
  Receive Date: 20130201
  Receipt Date: 20130201
  Transmission Date: 20140127
  Serious: No
  Sender: FDA-Public Use
  Company Number: US-GALDERMA-US-GDP-11412276

PATIENT
  Age: 14 None
  Sex: Male
  Weight: 51 kg

DRUGS (4)
  1. EPIDUO [Suspect]
     Indication: ACNE
     Route: 061
     Dates: start: 20111029
  2. SALICYLIC ACID [Suspect]
     Indication: THERAPEUTIC SKIN CARE TOPICAL
     Route: 061
     Dates: end: 20111102
  3. ADVAIR INHALER [Concomitant]
     Indication: ASTHMA
     Route: 055
  4. PROVENTIL INHALER [Concomitant]
     Indication: ASTHMA
     Route: 055

REACTIONS (6)
  - Eye pain [Recovering/Resolving]
  - Erythema [Recovering/Resolving]
  - Dry skin [Recovering/Resolving]
  - Skin burning sensation [Recovering/Resolving]
  - Skin exfoliation [Recovering/Resolving]
  - Off label use [None]
